FAERS Safety Report 4592007-9 (Version None)
Quarter: 2005Q1

REPORT INFORMATION
  Report Type: 
  Country: None (occurrence: None)
  Receive Date: 20050125
  Receipt Date: 20040825
  Transmission Date: 20050727
  Serious: No
  Sender: FDA-Public Use
  Company Number: USA040876627

PATIENT
  Age: 75 Year
  Sex: Female
  Weight: 62 kg

DRUGS (5)
  1. FORTEO [Suspect]
     Indication: OSTEOPOROSIS
     Dosage: 20 UG DAY
  2. SALINE (SODIUM CHLORIDE) [Suspect]
     Dates: start: 20040819, end: 20040826
  3. INSULIN LISPRO [Concomitant]
  4. CALCIUM GLUCONATE [Concomitant]
  5. LANTUS [Concomitant]

REACTIONS (3)
  - MEDICATION ERROR [None]
  - NERVOUSNESS [None]
  - PALPITATIONS [None]
